FAERS Safety Report 14113306 (Version 2)
Quarter: 2017Q4

REPORT INFORMATION
  Report Type: Report from Study
  Country: JP (occurrence: JP)
  Receive Date: 20171023
  Receipt Date: 20171024
  Transmission Date: 20180321
  Serious: Yes (Other)
  Sender: FDA-Public Use
  Company Number: JP-BRISTOL-MYERS SQUIBB COMPANY-BMS-2015-024685

PATIENT
  Age: 78 Year
  Sex: Female

DRUGS (11)
  1. NIVOLUMAB [Suspect]
     Active Substance: NIVOLUMAB
     Indication: PRODUCT USED FOR UNKNOWN INDICATION
     Dosage: 2 UNK, UNK
     Route: 041
     Dates: start: 20161004, end: 20161004
  2. NIVOLUMAB [Suspect]
     Active Substance: NIVOLUMAB
     Indication: PRODUCT USED FOR UNKNOWN INDICATION
     Dosage: 2 MG/KG, UNK
     Route: 041
     Dates: start: 20150414, end: 20150414
  3. NIVOLUMAB [Suspect]
     Active Substance: NIVOLUMAB
     Indication: PRODUCT USED FOR UNKNOWN INDICATION
     Dosage: 2 MG/KG, UNK
     Route: 041
     Dates: start: 20150615, end: 20150615
  4. NIVOLUMAB [Suspect]
     Active Substance: NIVOLUMAB
     Indication: PRODUCT USED FOR UNKNOWN INDICATION
     Dosage: 2 MG/KG, UNK
     Route: 041
     Dates: start: 20150910, end: 20150910
  5. NIVOLUMAB [Suspect]
     Active Substance: NIVOLUMAB
     Indication: MALIGNANT MELANOMA
     Dosage: 2 MG/KG, Q3WK
     Route: 041
     Dates: start: 20150324, end: 20150324
  6. NIVOLUMAB [Suspect]
     Active Substance: NIVOLUMAB
     Indication: PRODUCT USED FOR UNKNOWN INDICATION
     Dosage: 2 MG/KG, UNK
     Route: 041
     Dates: start: 20150512, end: 20150512
  7. INSULIN [Concomitant]
     Active Substance: INSULIN NOS
     Indication: PRODUCT USED FOR UNKNOWN INDICATION
     Route: 065
  8. ASPIRIN                            /00002701/ [Concomitant]
     Active Substance: ASPIRIN
     Indication: PRODUCT USED FOR UNKNOWN INDICATION
     Route: 065
  9. NIMESULIDE [Concomitant]
     Active Substance: NIMESULIDE
     Indication: PRODUCT USED FOR UNKNOWN INDICATION
     Route: 065
  10. NIVOLUMAB [Suspect]
     Active Substance: NIVOLUMAB
     Indication: PRODUCT USED FOR UNKNOWN INDICATION
     Dosage: 2 MG/KG, UNK
     Route: 041
     Dates: start: 20150803, end: 20150803
  11. DEXTRAN [Concomitant]
     Active Substance: DEXTRAN
     Indication: PRODUCT USED FOR UNKNOWN INDICATION
     Route: 065

REACTIONS (5)
  - Malignant neoplasm progression [Unknown]
  - Infusion related reaction [Recovered/Resolved]
  - Bronchitis [Recovered/Resolved]
  - Periodontitis [Recovered/Resolved]
  - Inappropriate schedule of drug administration [Unknown]

NARRATIVE: CASE EVENT DATE: 2015
